FAERS Safety Report 17257094 (Version 4)
Quarter: 2020Q3

REPORT INFORMATION
  Report Type: Report from Study
  Country: US (occurrence: US)
  Receive Date: 20200110
  Receipt Date: 20200709
  Transmission Date: 20201102
  Serious: Yes (Other)
  Sender: FDA-Public Use
  Company Number: NVSC2020US000651

PATIENT
  Sex: Male

DRUGS (3)
  1. PROZAC [Concomitant]
     Active Substance: FLUOXETINE HYDROCHLORIDE
     Indication: PRODUCT USED FOR UNKNOWN INDICATION
     Route: 065
  2. GILENYA [Suspect]
     Active Substance: FINGOLIMOD HYDROCHLORIDE
     Indication: MULTIPLE SCLEROSIS
  3. GILENYA [Suspect]
     Active Substance: FINGOLIMOD HYDROCHLORIDE
     Indication: MULTIPLE SCLEROSIS
     Dosage: 0.5 MG, QD
     Route: 048
     Dates: start: 20190831

REACTIONS (14)
  - Disturbance in attention [Unknown]
  - Accident [Unknown]
  - Dry mouth [Unknown]
  - Bladder disorder [Unknown]
  - Sciatica [Unknown]
  - Gait disturbance [Unknown]
  - Fall [Unknown]
  - Sleep disorder [Unknown]
  - Eye injury [Unknown]
  - Neuralgia [Unknown]
  - Arthralgia [Unknown]
  - Skin exfoliation [Unknown]
  - Multiple sclerosis relapse [Unknown]
  - Hypophagia [Unknown]
